FAERS Safety Report 7806568-7 (Version None)
Quarter: 2011Q4

REPORT INFORMATION
  Report Type: 
  Country: None (occurrence: None)
  Receive Date: 20111007
  Receipt Date: 20111007
  Transmission Date: 20120403
  Serious: No
  Sender: FDA-Public Use
  Company Number: None

PATIENT
  Sex: Male

DRUGS (1)
  1. SUTENT [Suspect]
     Indication: RENAL CANCER
     Dosage: 50MG QD ORAL
     Route: 048
     Dates: start: 20101112, end: 20111005

REACTIONS (3)
  - OROPHARYNGEAL PAIN [None]
  - CHEST PAIN [None]
  - TONSILLAR DISORDER [None]
